FAERS Safety Report 24969242 (Version 1)
Quarter: 2025Q1

REPORT INFORMATION
  Report Type: Spontaneous
  Country: SG (occurrence: SG)
  Receive Date: 20250214
  Receipt Date: 20250214
  Transmission Date: 20250408
  Serious: Yes (Hospitalization, Other)
  Sender: NOVITIUM PHARMA
  Company Number: SG-NOVITIUMPHARMA-2025SGNVP00351

PATIENT
  Age: 5 Day
  Sex: Female

DRUGS (5)
  1. INDOMETHACIN [Suspect]
     Active Substance: INDOMETHACIN
     Indication: Patent ductus arteriosus
  2. CAFFEINE [Concomitant]
     Active Substance: CAFFEINE
     Indication: Product used for unknown indication
  3. FLUCONAZOLE [Concomitant]
     Active Substance: FLUCONAZOLE
     Indication: Evidence based treatment
  4. PENICILLIN [Concomitant]
     Active Substance: PENICILLIN
     Indication: Evidence based treatment
  5. GENTAMICIN [Concomitant]
     Active Substance: GENTAMICIN
     Indication: Evidence based treatment

REACTIONS (3)
  - Necrotising colitis [Unknown]
  - Intussusception [Unknown]
  - Intestinal perforation [Unknown]
